FAERS Safety Report 4982181-4 (Version None)
Quarter: 2006Q2

REPORT INFORMATION
  Report Type: 
  Country: None (occurrence: None)
  Receive Date: 20060421
  Receipt Date: 20060405
  Transmission Date: 20061013
  Serious: Yes (Hospitalization)
  Sender: FDA-Public Use
  Company Number: 2006RR-01987

PATIENT
  Age: 34 Year
  Sex: Female

DRUGS (2)
  1. OLANZAPINE [Suspect]
     Indication: DEPRESSION
     Dosage: 6 MG, QD
  2. FLUOXETINE [Suspect]
     Indication: DEPRESSION
     Dosage: 25 MG, QD

REACTIONS (8)
  - DEPRESSION [None]
  - DISEASE RECURRENCE [None]
  - DRUG DOSE OMISSION [None]
  - GRANDIOSITY [None]
  - MANIA [None]
  - SPEECH DISORDER [None]
  - TREATMENT NONCOMPLIANCE [None]
  - WEIGHT INCREASED [None]
